FAERS Safety Report 15668886 (Version 1)
Quarter: 2018Q4

REPORT INFORMATION
  Report Type: Spontaneous
  Country: US (occurrence: US)
  Receive Date: 20181129
  Receipt Date: 20181129
  Transmission Date: 20190205
  Serious: Yes (Life-Threatening, Other)
  Sender: FDA-Public Use
  Company Number: US-HIKMA PHARMACEUTICALS USA INC.-US-H14001-18-08496

PATIENT
  Age: 39 Year
  Sex: Female

DRUGS (1)
  1. DILTIAZEM. [Suspect]
     Active Substance: DILTIAZEM
     Indication: ATRIAL FIBRILLATION
     Dosage: ()
     Route: 041

REACTIONS (2)
  - Cardiogenic shock [Unknown]
  - Cardiac arrest [Unknown]
